FAERS Safety Report 14270327 (Version 1)
Quarter: 2017Q4

REPORT INFORMATION
  Report Type: Spontaneous
  Country: US (occurrence: US)
  Receive Date: 20171211
  Receipt Date: 20171211
  Transmission Date: 20180321
  Serious: Yes (Other)
  Sender: FDA-Public Use
  Company Number: US-OTSUKA-2015_006054

PATIENT

DRUGS (1)
  1. ARIPIPRAZOLE. [Suspect]
     Active Substance: ARIPIPRAZOLE
     Indication: BIPOLAR II DISORDER
     Dosage: 10 MG, QD
     Route: 048
     Dates: start: 20140812

REACTIONS (4)
  - Concussion [Unknown]
  - Road traffic accident [Unknown]
  - Contusion [Unknown]
  - Weight increased [Unknown]
